FAERS Safety Report 8345526-3 (Version None)
Quarter: 2012Q2

REPORT INFORMATION
  Report Type: 
  Country: None (occurrence: None)
  Receive Date: 20120508
  Receipt Date: 20120427
  Transmission Date: 20120825
  Serious: Yes (Other)
  Sender: FDA-Public Use
  Company Number: JP-BAYER-2012-040704

PATIENT
  Age: 59 Year
  Sex: Female

DRUGS (2)
  1. ASPIRIN [Suspect]
     Route: 048
  2. WARFARIN SODIUM [Suspect]
     Route: 048

REACTIONS (1)
  - MUSCLE HAEMORRHAGE [None]
